FAERS Safety Report 6601906-5 (Version None)
Quarter: 2010Q1

REPORT INFORMATION
  Report Type: 
  Country: None (occurrence: None)
  Receive Date: 20100225
  Receipt Date: 20100218
  Transmission Date: 20100710
  Serious: Yes (Other)
  Sender: FDA-Public Use
  Company Number: US-KINGPHARMUSA00001-K201000180

PATIENT
  Sex: Female

DRUGS (1)
  1. THROMBIN NOS [Suspect]
     Indication: SURGERY
     Dosage: UNK
     Route: 061

REACTIONS (3)
  - BLOOD PRESSURE DECREASED [None]
  - LABILE BLOOD PRESSURE [None]
  - POST PROCEDURAL HAEMORRHAGE [None]
